FAERS Safety Report 19658364 (Version 2)
Quarter: 2021Q3

REPORT INFORMATION
  Report Type: Report from Study
  Country: US (occurrence: US)
  Receive Date: 20210805
  Receipt Date: 20210916
  Transmission Date: 20211014
  Serious: Yes (Other)
  Sender: FDA-Public Use
  Company Number: US-JNJFOC-20210800518

PATIENT
  Age: 25 Year
  Sex: Female

DRUGS (12)
  1. ZINC. [Concomitant]
     Active Substance: ZINC
  2. VITAMIN B12 [Concomitant]
     Active Substance: CYANOCOBALAMIN
  3. VITAMIN D [ERGOCALCIFEROL] [Concomitant]
     Active Substance: ERGOCALCIFEROL
  4. HUMIRA [Concomitant]
     Active Substance: ADALIMUMAB
  5. VITAMIN D2 [Concomitant]
     Active Substance: ERGOCALCIFEROL
  6. FOLIC ACID. [Concomitant]
     Active Substance: FOLIC ACID
  7. CALCIUM CARBONATE;VITAMIN D NOS [Concomitant]
     Active Substance: CALCIUM CARBONATE\VITAMIN D
  8. INFLIXIMAB, RECOMBINANT [Suspect]
     Active Substance: INFLIXIMAB
     Route: 042
     Dates: start: 20160212, end: 20160311
  9. VITAMIN C [Concomitant]
     Active Substance: ASCORBIC ACID
  10. IRON COMPLEX [IRON] [Concomitant]
     Active Substance: IRON
  11. INFLIXIMAB, RECOMBINANT [Suspect]
     Active Substance: INFLIXIMAB
     Indication: INFLAMMATORY BOWEL DISEASE
     Route: 042
     Dates: start: 20101105, end: 20110506
  12. BUDESONIDE. [Concomitant]
     Active Substance: BUDESONIDE

REACTIONS (1)
  - Rectal abscess [Recovered/Resolved]

NARRATIVE: CASE EVENT DATE: 20210629
